FAERS Safety Report 5762575-X (Version None)
Quarter: 2008Q2

REPORT INFORMATION
  Report Type: 
  Country: None (occurrence: None)
  Receive Date: 20080609
  Receipt Date: 20080604
  Transmission Date: 20081010
  Serious: Yes (Other)
  Sender: FDA-Public Use
  Company Number: D0057568A

PATIENT
  Sex: Male

DRUGS (3)
  1. REQUIP [Suspect]
     Indication: PARKINSON'S DISEASE
     Dosage: 12MG PER DAY
     Route: 048
     Dates: start: 20080501
  2. REQUIP [Concomitant]
     Indication: PARKINSON'S DISEASE
     Dosage: 3MG SIX TIMES PER DAY
     Route: 048
     Dates: end: 20080501
  3. OTHER MEDICATIONS [Concomitant]
     Route: 065

REACTIONS (2)
  - FATIGUE [None]
  - SUDDEN ONSET OF SLEEP [None]
